FAERS Safety Report 4553626-9 (Version None)
Quarter: 2004Q4

REPORT INFORMATION
  Report Type: 
  Country: None (occurrence: None)
  Receive Date: 20041227
  Receipt Date: 20041019
  Transmission Date: 20050328
  Serious: No
  Sender: FDA-Public Use
  Company Number: 04P-163-0277867-00

PATIENT
  Age: 50 Year
  Sex: Female
  Weight: 93.441 kg

DRUGS (7)
  1. HUMIRA [Suspect]
     Indication: RHEUMATOID ARTHRITIS
     Dosage: 40 MG, 1 IN 2 WK, SUBCUTANEOUS
     Route: 058
     Dates: start: 20040804
  2. CELECOXIB [Concomitant]
  3. LANSOPRAZOLE [Concomitant]
  4. SERTRALINE HYDROCHLORIDE [Concomitant]
  5. ESTROTEST [Concomitant]
  6. BENICAR [Concomitant]
  7. FEXOFENADINE HYDROCHLORIDE [Concomitant]

REACTIONS (2)
  - PRURITUS [None]
  - RASH [None]
